FAERS Safety Report 16103329 (Version 1)
Quarter: 2019Q1

REPORT INFORMATION
  Report Type: Spontaneous
  Country: US (occurrence: US)
  Receive Date: 20190322
  Receipt Date: 20190322
  Transmission Date: 20190418
  Serious: No
  Sender: FDA-Public Use
  Company Number: US-TEVA-2019-US-1029662

PATIENT
  Age: 17 Year
  Sex: Male

DRUGS (2)
  1. PROVIGIL [Suspect]
     Active Substance: MODAFINIL
     Indication: HYPERSOMNIA
     Dosage: DOSAGE OF 100MG TO 150MG AND RARELY 200 MG FROM THE PAST 3.5 MONTHS
  2. REXIPRA ESCITAL [Concomitant]
     Indication: ANTIDEPRESSANT THERAPY

REACTIONS (6)
  - Headache [Unknown]
  - Suspected counterfeit product [Unknown]
  - Intentional product use issue [Unknown]
  - Fatigue [Unknown]
  - Drug effect decreased [Unknown]
  - Diarrhoea [Unknown]
